FAERS Safety Report 25259056 (Version 1)
Quarter: 2025Q2

REPORT INFORMATION
  Report Type: Spontaneous
  Country: US (occurrence: None)
  Receive Date: 20250430
  Receipt Date: 20250430
  Transmission Date: 20250716
  Serious: Yes (Other)
  Sender: FDA-CTU
  Company Number: None

PATIENT
  Age: 39 Year
  Sex: Female

DRUGS (1)
  1. BENLYSTA [Suspect]
     Active Substance: BELIMUMAB
     Indication: Systemic lupus erythematosus
     Dosage: FREQUENCY : WEEKLY;?

REACTIONS (9)
  - Systemic lupus erythematosus [None]
  - Fatigue [None]
  - Loss of personal independence in daily activities [None]
  - Pain [None]
  - Brain fog [None]
  - Stress [None]
  - Anxiety [None]
  - Insomnia [None]
  - Suicidal ideation [None]
